FAERS Safety Report 6389305-5 (Version None)
Quarter: 2009Q4

REPORT INFORMATION
  Report Type: 
  Country: None (occurrence: None)
  Receive Date: 20091006
  Receipt Date: 20090930
  Transmission Date: 20100525
  Serious: Yes (Life-Threatening, Other)
  Sender: FDA-Public Use
  Company Number: PHHY2009AU12446

PATIENT
  Sex: Female

DRUGS (17)
  1. CLOZARIL [Suspect]
     Indication: SCHIZOPHRENIA
     Dosage: 100 MG, QHS
     Route: 048
     Dates: start: 20010101
  2. AVAPRO [Concomitant]
     Dosage: 300 MG, UNK
  3. LIPITOR [Concomitant]
     Dosage: 40 MG, UNK
  4. LASIX [Concomitant]
     Dosage: 40 MG, BID
  5. TRITACE [Concomitant]
     Dosage: 5 MG, UNK
  6. WARFARIN [Concomitant]
  7. SLOW-K [Concomitant]
     Dosage: 600 MG, UNK
  8. ASPIRIN [Concomitant]
     Dosage: 10 MG, UNK
  9. OMEPRAZOLE [Concomitant]
     Dosage: 40 MG, BID
  10. VENTOLIN [Concomitant]
  11. RAMIPRIL [Concomitant]
     Dosage: 10 MG, BID
  12. ATENOLOL [Concomitant]
     Dosage: 25 MG, UNK
  13. HUMALOG MIX [Concomitant]
  14. SPIRIVA [Concomitant]
     Dosage: 18 UG, BID
  15. SERETIDE [Concomitant]
     Dosage: UNK
  16. CENESTON [Concomitant]
  17. PROCTOSEDYL [Concomitant]

REACTIONS (6)
  - DIASTOLIC DYSFUNCTION [None]
  - LEFT ATRIAL DILATATION [None]
  - LEFT VENTRICULAR HYPERTROPHY [None]
  - MYOCARDITIS [None]
  - PULMONARY HYPERTENSION [None]
  - RIGHT ATRIAL DILATATION [None]
